FAERS Safety Report 13476337 (Version 1)
Quarter: 2017Q2

REPORT INFORMATION
  Report Type: Spontaneous
  Country: US (occurrence: US)
  Receive Date: 20170424
  Receipt Date: 20170424
  Transmission Date: 20170830
  Serious: Yes (Hospitalization)
  Sender: FDA-Public Use
  Company Number: None

PATIENT
  Age: 46 Year
  Sex: Female
  Weight: 67.05 kg

DRUGS (2)
  1. MULTI-VITAMIN [Concomitant]
     Active Substance: .ALPHA.-TOCOPHEROL ACETATE, DL-\ASCORBIC ACID\CYANOCOBALAMIN\FLUORIDE ION\FOLIC ACID\NIACIN\PYRIDOXINE\RIBOFLAVIN\THIAMINE\VITAMIN A\VITAMIN D
  2. LEVOFLOXACIN. [Suspect]
     Active Substance: LEVOFLOXACIN
     Indication: KIDNEY INFECTION
     Dosage: ?          QUANTITY:1 TABLET(S);?
     Route: 048
     Dates: start: 20170416, end: 20170416

REACTIONS (15)
  - Palpitations [None]
  - Burning sensation [None]
  - Weight bearing difficulty [None]
  - Tendon pain [None]
  - Bedridden [None]
  - Arthralgia [None]
  - Paraesthesia [None]
  - Panic attack [None]
  - Nausea [None]
  - Confusional state [None]
  - Arthropathy [None]
  - Depression [None]
  - Depressed level of consciousness [None]
  - Anxiety [None]
  - Dizziness [None]

NARRATIVE: CASE EVENT DATE: 20170416
